FAERS Safety Report 10038768 (Version 1)
Quarter: 2014Q1

REPORT INFORMATION
  Report Type: Spontaneous
  Country: US (occurrence: None)
  Receive Date: 20140306
  Receipt Date: 20140306
  Transmission Date: 20141002
  Serious: Yes (Hospitalization)
  Sender: FDA-Public Use
  Company Number: 163-21880-13073264

PATIENT
  Age: 59 Year
  Sex: Female
  Weight: 75.7 kg

DRUGS (9)
  1. REVLIMID (LENALIDOMIDE) (15 MILLIGRAM, CAPSULES) [Suspect]
     Indication: PLASMA CELL MYELOMA
     Route: 048
     Dates: start: 20120313
  2. VALACYCLOVIR HCL (VALACICLOVIR HYDROCHLORIDE) (TABLETS) [Concomitant]
  3. GABAPENTIN (GABAPENTIN) (CAPSULES) [Concomitant]
  4. SULFAMETHOX AZOLE-TMP (BACTRIM) (TABLETS) [Concomitant]
  5. LEVOTHYROXINE (LEVOTHYROXINE) (TABLETS)? [Concomitant]
  6. NYSTATIN (NYSTATIN) (SUSPENSION) [Concomitant]
  7. CALCIUM (CALCIUM) (CHEWABLE TABLET) [Concomitant]
  8. PROAIR HFA (SALBUTAMOL SULFATE) (INHALANT) [Concomitant]
  9. ASPIRIN (ACETYLSALICYLIC ACID) (ENTERIC-COATED TABLET) [Concomitant]

REACTIONS (6)
  - Sialoadenitis [None]
  - Throat tightness [None]
  - Back pain [None]
  - Lethargy [None]
  - Fatigue [None]
  - Chapped lips [None]
